FAERS Safety Report 14937024 (Version 1)
Quarter: 2018Q2

REPORT INFORMATION
  Report Type: Spontaneous
  Country: US (occurrence: US)
  Receive Date: 20180525
  Receipt Date: 20180525
  Transmission Date: 20180711
  Serious: No
  Sender: FDA-Public Use
  Company Number: US-JNJFOC-20180434304

PATIENT
  Age: 60 Year
  Sex: Female
  Weight: 47.17 kg

DRUGS (2)
  1. ADVIL [Concomitant]
     Active Substance: IBUPROFEN
     Indication: ANALGESIC THERAPY
     Route: 065
  2. TYLENOL EXTRA STRENGTH [Suspect]
     Active Substance: ACETAMINOPHEN
     Indication: ANALGESIC THERAPY
     Dosage: TOOK A TOTAL OF FOUR CAPLETS IN A TWENTYFOUR??HOUR PERIOD
     Route: 048

REACTIONS (2)
  - Product use complaint [Unknown]
  - Foreign body in respiratory tract [Recovered/Resolved]
